FAERS Safety Report 25217238 (Version 2)
Quarter: 2025Q3

REPORT INFORMATION
  Report Type: Spontaneous
  Country: US (occurrence: US)
  Receive Date: 20250419
  Receipt Date: 20250731
  Transmission Date: 20251021
  Serious: No
  Sender: SANOFI AVENTIS
  Company Number: US-SA-2025SA113034

PATIENT
  Age: 66 Year
  Sex: Male

DRUGS (1)
  1. DUPIXENT [Suspect]
     Active Substance: DUPILUMAB
     Indication: Asthma
     Dosage: 300 MG, QOW
     Route: 058

REACTIONS (6)
  - Increased viscosity of upper respiratory secretion [Unknown]
  - Injection site bruising [Unknown]
  - Injection site pain [Unknown]
  - Sarcoidosis [Unknown]
  - Secretion discharge [Unknown]
  - Dyspnoea [Recovering/Resolving]
